FAERS Safety Report 12284904 (Version 1)
Quarter: 2016Q2

REPORT INFORMATION
  Report Type: Spontaneous
  Country: FR (occurrence: FR)
  Receive Date: 20160420
  Receipt Date: 20160420
  Transmission Date: 20160815
  Serious: Yes (Hospitalization)
  Sender: FDA-Public Use
  Company Number: FR-ACCORD-039763

PATIENT
  Age: 62 Year
  Sex: Female

DRUGS (6)
  1. KARDEGIC [Concomitant]
     Active Substance: ASPIRIN LYSINE
  2. NAVELBINE [Suspect]
     Active Substance: VINORELBINE TARTRATE
     Indication: PRODUCT USED FOR UNKNOWN INDICATION
     Route: 048
     Dates: start: 20151007
  3. TAHOR [Concomitant]
     Active Substance: ATORVASTATIN CALCIUM
  4. TILDIEM [Concomitant]
     Active Substance: DILTIAZEM HYDROCHLORIDE
  5. CISPLATINE ACCORD [Suspect]
     Active Substance: CISPLATIN
     Indication: PRODUCT USED FOR UNKNOWN INDICATION
     Route: 042
     Dates: start: 20150930
  6. SURFARLEM [Concomitant]

REACTIONS (8)
  - Hypertension [Recovering/Resolving]
  - Decreased appetite [Recovering/Resolving]
  - Bone marrow failure [Recovering/Resolving]
  - Diarrhoea [Recovering/Resolving]
  - Abdominal pain lower [Recovering/Resolving]
  - Moraxella infection [Recovering/Resolving]
  - Vomiting [Recovering/Resolving]
  - Enterobacter infection [Recovering/Resolving]

NARRATIVE: CASE EVENT DATE: 20151021
